FAERS Safety Report 15405980 (Version 1)
Quarter: 2018Q3

REPORT INFORMATION
  Report Type: Spontaneous
  Country: US (occurrence: US)
  Receive Date: 20180920
  Receipt Date: 20180920
  Transmission Date: 20181010
  Serious: No
  Sender: FDA-Public Use
  Company Number: US-PFIZER INC-2018262835

PATIENT
  Age: 10 Year
  Sex: Male
  Weight: 26.4 kg

DRUGS (2)
  1. GENOTROPIN [Suspect]
     Active Substance: SOMATROPIN
     Dosage: 12 MG/ML
  2. GENOTROPIN [Suspect]
     Active Substance: SOMATROPIN
     Dosage: 0.1 MG, DAILY
     Dates: start: 20180626

REACTIONS (3)
  - Heart rate increased [Unknown]
  - Drug prescribing error [Unknown]
  - Headache [Unknown]

NARRATIVE: CASE EVENT DATE: 20180814
